FAERS Safety Report 16993470 (Version 2)
Quarter: 2019Q4

REPORT INFORMATION
  Report Type: Spontaneous
  Country: CA (occurrence: ZA)
  Receive Date: 20191105
  Receipt Date: 20191108
  Transmission Date: 20200122
  Serious: Yes (Hospitalization)
  Sender: FDA-Public Use
  Company Number: CA-GLENMARK PHARMACEUTICALS-2019GMK044000

PATIENT

DRUGS (2)
  1. ATOVAQUONE AND PROGUANIL HYDROCHLORIDE TABLETS [Suspect]
     Active Substance: ATOVAQUONE\PROGUANIL HYDROCHLORIDE
     Indication: MALARIA PROPHYLAXIS
     Dosage: 1 DF, OD (AS DIRECTED)
     Route: 048
     Dates: start: 20190905, end: 20190918
  2. DIAZEPAM. [Interacting]
     Active Substance: DIAZEPAM
     Indication: PRODUCT USED FOR UNKNOWN INDICATION
     Dosage: UNK (GIVEN TWO SHOTS)
     Route: 065

REACTIONS (20)
  - Productive cough [Unknown]
  - Epistaxis [Unknown]
  - Drug interaction [Unknown]
  - Hypersomnia [Unknown]
  - Hypersensitivity [Unknown]
  - Malaise [Recovering/Resolving]
  - Feeling abnormal [Unknown]
  - Chest X-ray abnormal [Not Recovered/Not Resolved]
  - Heat stroke [Unknown]
  - Dehydration [Unknown]
  - Tardive dyskinesia [Unknown]
  - Weight decreased [Unknown]
  - Blood thyroid stimulating hormone increased [Recovered/Resolved]
  - Vision blurred [Unknown]
  - Anxiety [Unknown]
  - Peripheral swelling [Unknown]
  - Haemoptysis [Unknown]
  - Acute psychosis [Not Recovered/Not Resolved]
  - Amnesia [Not Recovered/Not Resolved]
  - Dementia [Unknown]

NARRATIVE: CASE EVENT DATE: 2019
